FAERS Safety Report 8830445 (Version 2)
Quarter: 2012Q4

REPORT INFORMATION
  Report Type: 
  Country: CH (occurrence: CH)
  Receive Date: 20121009
  Receipt Date: 20121024
  Transmission Date: 20130627
  Serious: Yes (Death, Other)
  Sender: FDA-Public Use
  Company Number: CH-EISAI INC-E7389-03089-SPO-CH

PATIENT
  Age: 40 Year
  Sex: Female

DRUGS (1)
  1. HALAVEN [Suspect]
     Indication: METASTATIC BREAST CANCER
     Route: 041
     Dates: start: 20120921

REACTIONS (1)
  - Acute respiratory failure [Fatal]
